FAERS Safety Report 14937270 (Version 1)
Quarter: 2018Q2

REPORT INFORMATION
  Report Type: Spontaneous
  Country: DK (occurrence: DK)
  Receive Date: 20180525
  Receipt Date: 20180525
  Transmission Date: 20180711
  Serious: Yes (Other)
  Sender: FDA-Public Use
  Company Number: DK-TEVA-2018-DK-898091

PATIENT
  Age: 53 Year
  Sex: Female

DRUGS (3)
  1. ESTRADIOL. [Suspect]
     Active Substance: ESTRADIOL
     Indication: MENOPAUSAL SYMPTOMS
     Dosage: 2 MILLIGRAM DAILY;
     Route: 065
     Dates: start: 20160819
  2. ESTRADIOL. [Suspect]
     Active Substance: ESTRADIOL
     Dosage: 1 MILLIGRAM DAILY;
     Route: 065
     Dates: start: 20160825
  3. ESTRADIOL. [Suspect]
     Active Substance: ESTRADIOL
     Dosage: 2 MILLIGRAM DAILY;
     Route: 065
     Dates: start: 20160922

REACTIONS (3)
  - Deep vein thrombosis [Recovered/Resolved]
  - Pain in extremity [Recovered/Resolved]
  - Thrombosis [Unknown]

NARRATIVE: CASE EVENT DATE: 20170518
